FAERS Safety Report 8539741-3 (Version None)
Quarter: 2012Q3

REPORT INFORMATION
  Report Type: 
  Country: None (occurrence: None)
  Receive Date: 20120726
  Receipt Date: 20110912
  Transmission Date: 20120928
  Serious: No
  Sender: FDA-Public Use
  Company Number: US-ASTRAZENECA-2009SE20153

PATIENT
  Age: 49 Year
  Sex: Male
  Weight: 89.4 kg

DRUGS (17)
  1. SEROQUEL [Suspect]
     Route: 048
  2. LEXAPRO [Concomitant]
  3. SEROQUEL [Suspect]
     Route: 048
     Dates: start: 20091001
  4. SEROQUEL [Suspect]
     Route: 048
  5. CLONAZEPAM [Concomitant]
  6. AVADAR [Concomitant]
  7. SEROQUEL [Suspect]
     Route: 048
     Dates: start: 20090901, end: 20091001
  8. SEROQUEL [Suspect]
     Route: 048
     Dates: start: 20091001
  9. DEPAKOTE [Concomitant]
     Indication: BIPOLAR DISORDER
  10. FLOMAX [Concomitant]
  11. SEROQUEL [Suspect]
     Indication: ANXIETY
     Route: 048
     Dates: start: 20090301, end: 20090901
  12. SEROQUEL [Suspect]
     Indication: BIPOLAR DISORDER
     Route: 048
     Dates: start: 20090301, end: 20090901
  13. SEROQUEL [Suspect]
     Indication: SLEEP DISORDER
     Route: 048
     Dates: start: 20090301, end: 20090901
  14. SEROQUEL [Suspect]
     Route: 048
     Dates: start: 20090901, end: 20091001
  15. SEROQUEL [Suspect]
     Route: 048
     Dates: start: 20090901, end: 20091001
  16. SEROQUEL [Suspect]
     Route: 048
     Dates: start: 20091001
  17. SEROQUEL [Suspect]
     Route: 048

REACTIONS (6)
  - OFF LABEL USE [None]
  - DRUG INEFFECTIVE FOR UNAPPROVED INDICATION [None]
  - FATIGUE [None]
  - MUSCLE SPASMS [None]
  - INSOMNIA [None]
  - SLEEP DISORDER [None]
